FAERS Safety Report 17510188 (Version 1)
Quarter: 2020Q1

REPORT INFORMATION
  Report Type: Spontaneous
  Country: US (occurrence: US)
  Receive Date: 20200306
  Receipt Date: 20200306
  Transmission Date: 20200409
  Serious: Yes (Disabling, Other)
  Sender: FDA-Public Use
  Company Number: US-PFIZER INC-2020099485

PATIENT
  Age: 72 Year
  Sex: Female
  Weight: 87.54 kg

DRUGS (5)
  1. XELJANZ XR [Suspect]
     Active Substance: TOFACITINIB CITRATE
     Indication: RHEUMATOID ARTHRITIS
     Dosage: 11 MG, 1X/DAY
     Dates: end: 20200105
  2. METHOTREXATE. [Concomitant]
     Active Substance: METHOTREXATE
     Dosage: 20 MG, WEEKLY
  3. METHOTREXATE. [Concomitant]
     Active Substance: METHOTREXATE
     Dosage: 17.5 MG, WEEKLY
  4. NOVOLIN R [Concomitant]
     Active Substance: INSULIN HUMAN
     Indication: BLOOD INSULIN ABNORMAL
     Dosage: UNK, 3X/DAY(15 UNITS BEFORE BREAKFAST, AND A SLIDING SCALE, 15 UNITS BEFORE LUNCH, 15 UNITS BEFORE )
  5. NOVOLIN N [Concomitant]
     Active Substance: INSULIN HUMAN
     Indication: BLOOD INSULIN ABNORMAL
     Dosage: UNK, 2X/DAY (65 UNITS IN THE MORNING AND 55 UNITS BEFORE DINNER)

REACTIONS (6)
  - Asthma [Unknown]
  - Sinusitis [Unknown]
  - Pneumonia [Recovering/Resolving]
  - Malaise [Unknown]
  - Pyrexia [Unknown]
  - Respiratory tract infection [Recovering/Resolving]

NARRATIVE: CASE EVENT DATE: 202001
